FAERS Safety Report 11198457 (Version 2)
Quarter: 2015Q4

REPORT INFORMATION
  Report Type: Spontaneous
  Country: US (occurrence: US)
  Receive Date: 20150616
  Receipt Date: 20151023
  Transmission Date: 20160304
  Serious: Yes (Other)
  Sender: FDA-Public Use
  Company Number: US-H14001-15-00924

PATIENT
  Sex: Male

DRUGS (10)
  1. BROMOCRIPTINE [Concomitant]
     Active Substance: BROMOCRIPTINE
     Indication: NEUROLEPTIC MALIGNANT SYNDROME
     Route: 064
  2. PHENYTOIN. [Suspect]
     Active Substance: PHENYTOIN
     Indication: PSYCHOGENIC SEIZURE
     Route: 064
  3. METHYLPREDNISOLONE. [Concomitant]
     Active Substance: METHYLPREDNISOLONE
     Indication: ENCEPHALITIS
     Route: 064
  4. CLOBAZAM [Suspect]
     Active Substance: CLOBAZAM
     Indication: PSYCHOGENIC SEIZURE
     Route: 064
  5. ZIPRASIDONE. [Concomitant]
     Active Substance: ZIPRASIDONE
     Indication: PSYCHOGENIC SEIZURE
     Route: 064
  6. LEVETIRACETAM. [Suspect]
     Active Substance: LEVETIRACETAM
     Indication: PSYCHOGENIC SEIZURE
     Route: 064
  7. PROPOFOL. [Suspect]
     Active Substance: PROPOFOL
     Indication: SEDATION
     Route: 064
  8. MIDAZOLAM [Suspect]
     Active Substance: MIDAZOLAM\MIDAZOLAM HYDROCHLORIDE
     Indication: PSYCHOGENIC SEIZURE
     Route: 064
  9. IMMUNOGLOBULIN [Concomitant]
     Active Substance: HUMAN IMMUNOGLOBULIN G
     Indication: ENCEPHALITIS
     Route: 064
  10. TOPIRAMATE. [Suspect]
     Active Substance: TOPIRAMATE
     Indication: PSYCHOGENIC SEIZURE
     Route: 064

REACTIONS (11)
  - Neonatal respiratory depression [Recovered/Resolved]
  - Caesarean section [None]
  - Muscular weakness [Recovered/Resolved]
  - Foetal heart rate abnormal [None]
  - Drug withdrawal syndrome neonatal [Recovered/Resolved]
  - Foetal exposure during pregnancy [Recovered/Resolved]
  - Supraventricular tachycardia [Recovered/Resolved]
  - Breech presentation [None]
  - Anti-NMDA antibody positive [None]
  - Maternal drugs affecting foetus [None]
  - Premature baby [None]
